FAERS Safety Report 14624313 (Version 1)
Quarter: 2018Q1

REPORT INFORMATION
  Report Type: Spontaneous
  Country: US (occurrence: US)
  Receive Date: 20180309
  Receipt Date: 20180309
  Transmission Date: 20180509
  Serious: Yes (Disabling)
  Sender: FDA-Public Use
  Company Number: None

PATIENT
  Age: 25 Year
  Sex: Female
  Weight: 99 kg

DRUGS (1)
  1. WAL-DRYL [Suspect]
     Active Substance: DIPHENHYDRAMINE HYDROCHLORIDE
     Indication: MULTIPLE ALLERGIES
     Dosage: ?          QUANTITY:2 CAPSULE(S);?
     Route: 048
     Dates: start: 20180308, end: 20180308

REACTIONS (9)
  - Mood swings [None]
  - Anger [None]
  - Asthenia [None]
  - Somnolence [None]
  - Depressed mood [None]
  - Pain [None]
  - Dry mouth [None]
  - Migraine [None]
  - Dehydration [None]

NARRATIVE: CASE EVENT DATE: 20180308
